FAERS Safety Report 25711609 (Version 1)
Quarter: 2025Q3

REPORT INFORMATION
  Report Type: Spontaneous
  Country: US (occurrence: US)
  Receive Date: 20250821
  Receipt Date: 20250821
  Transmission Date: 20251021
  Serious: No
  Sender: MYLAN
  Company Number: US-MYLANLABS-2025M1069409

PATIENT
  Sex: Female

DRUGS (20)
  1. ZOLOFT [Suspect]
     Active Substance: SERTRALINE HYDROCHLORIDE
     Indication: Product used for unknown indication
  2. ZOLOFT [Suspect]
     Active Substance: SERTRALINE HYDROCHLORIDE
     Route: 065
  3. ZOLOFT [Suspect]
     Active Substance: SERTRALINE HYDROCHLORIDE
     Route: 065
  4. ZOLOFT [Suspect]
     Active Substance: SERTRALINE HYDROCHLORIDE
  5. CAPLYTA [Suspect]
     Active Substance: LUMATEPERONE
     Indication: Bipolar disorder
  6. CAPLYTA [Suspect]
     Active Substance: LUMATEPERONE
     Route: 065
  7. CAPLYTA [Suspect]
     Active Substance: LUMATEPERONE
     Route: 065
  8. CAPLYTA [Suspect]
     Active Substance: LUMATEPERONE
  9. LAMICTAL [Concomitant]
     Active Substance: LAMOTRIGINE
  10. LAMICTAL [Concomitant]
     Active Substance: LAMOTRIGINE
     Route: 065
  11. LAMICTAL [Concomitant]
     Active Substance: LAMOTRIGINE
     Route: 065
  12. LAMICTAL [Concomitant]
     Active Substance: LAMOTRIGINE
  13. ADDERALL [Concomitant]
     Active Substance: AMPHETAMINE ASPARTATE\AMPHETAMINE SULFATE\DEXTROAMPHETAMINE SACCHARATE\DEXTROAMPHETAMINE SULFATE
  14. ADDERALL [Concomitant]
     Active Substance: AMPHETAMINE ASPARTATE\AMPHETAMINE SULFATE\DEXTROAMPHETAMINE SACCHARATE\DEXTROAMPHETAMINE SULFATE
     Route: 065
  15. ADDERALL [Concomitant]
     Active Substance: AMPHETAMINE ASPARTATE\AMPHETAMINE SULFATE\DEXTROAMPHETAMINE SACCHARATE\DEXTROAMPHETAMINE SULFATE
     Route: 065
  16. ADDERALL [Concomitant]
     Active Substance: AMPHETAMINE ASPARTATE\AMPHETAMINE SULFATE\DEXTROAMPHETAMINE SACCHARATE\DEXTROAMPHETAMINE SULFATE
  17. XANAX [Concomitant]
     Active Substance: ALPRAZOLAM
  18. XANAX [Concomitant]
     Active Substance: ALPRAZOLAM
     Route: 065
  19. XANAX [Concomitant]
     Active Substance: ALPRAZOLAM
     Route: 065
  20. XANAX [Concomitant]
     Active Substance: ALPRAZOLAM

REACTIONS (1)
  - Obsessive-compulsive disorder [Not Recovered/Not Resolved]

NARRATIVE: CASE EVENT DATE: 20250101
